FAERS Safety Report 4608781-9 (Version None)
Quarter: 2005Q1

REPORT INFORMATION
  Report Type: 
  Country: None (occurrence: None)
  Receive Date: 20050309
  Receipt Date: 20050221
  Transmission Date: 20050727
  Serious: Yes (Hospitalization)
  Sender: FDA-Public Use
  Company Number: D01200404805

PATIENT
  Age: 56 Year
  Sex: Male

DRUGS (5)
  1. SR 57746 OR PLACEBO CAPSULE 1 MG [Suspect]
     Indication: CHEMOTHERAPY NEUROTOXICITY ATTENUATION
     Dosage: 1 MG QD
     Route: 048
     Dates: start: 20040428, end: 20041016
  2. SR 57746 OR PLACEBO CAPSULE 1 MG [Suspect]
     Indication: COLORECTAL CANCER METASTATIC
     Dosage: 1 MG QD
     Route: 048
     Dates: start: 20040428, end: 20041016
  3. OXALIPLATIN [Suspect]
     Dosage: 85 MG/M2 Q2W
     Route: 042
     Dates: start: 20041026, end: 20041026
  4. FLUOROURACIL [Suspect]
     Dosage: 400 MG/M2 AS IV BOLUS THEN 600 MG/M2 AS 22 HOURS CONTINUOUS INFUSION D1-D2 Q2W
     Route: 042
     Dates: start: 20041026, end: 20041027
  5. LEUCOVORIN CALCIUM [Suspect]
     Dosage: 200 MG/M2 AS 2 HOURS INFUSION ON D1-D2 Q2W
     Route: 042
     Dates: start: 20041026, end: 20041027

REACTIONS (12)
  - BLOOD PRESSURE DIASTOLIC DECREASED [None]
  - BRONCHOPNEUMONIA [None]
  - CANDIDIASIS [None]
  - ELECTROCARDIOGRAM T WAVE AMPLITUDE DECREASED [None]
  - INFLAMMATION [None]
  - LUNG ABSCESS [None]
  - LUNG DISORDER [None]
  - PNEUMONIA [None]
  - PULMONARY FIBROSIS [None]
  - SOFT TISSUE DISORDER [None]
  - SPUTUM CULTURE POSITIVE [None]
  - STAPHYLOCOCCAL INFECTION [None]
